FAERS Safety Report 9242198 (Version 1)
Quarter: 2013Q2

REPORT INFORMATION
  Report Type: Spontaneous
  Country: US (occurrence: US)
  Receive Date: 20130419
  Receipt Date: 20130419
  Transmission Date: 20140414
  Serious: Yes (Other)
  Sender: FDA-Public Use
  Company Number: US-AMGEN-USASP2013025625

PATIENT
  Age: 76 Year
  Sex: Female

DRUGS (2)
  1. PROLIA [Suspect]
     Indication: OSTEOPOROSIS POSTMENOPAUSAL
     Dosage: UNK
     Dates: start: 201203
  2. CELEBREX [Concomitant]
     Indication: OSTEOARTHRITIS

REACTIONS (4)
  - Jaw fracture [Unknown]
  - Dysphonia [Unknown]
  - Tooth disorder [Unknown]
  - Gingival infection [Unknown]
